FAERS Safety Report 16731953 (Version 2)
Quarter: 2019Q3

REPORT INFORMATION
  Report Type: Spontaneous
  Country: US (occurrence: US)
  Receive Date: 20190822
  Receipt Date: 20190917
  Transmission Date: 20191005
  Serious: Yes (Other)
  Sender: FDA-Public Use
  Company Number: US-ALLERGAN-1933969US

PATIENT
  Sex: Female
  Weight: 113.4 kg

DRUGS (2)
  1. CARAFATE [Suspect]
     Active Substance: SUCRALFATE
     Indication: PRODUCT USED FOR UNKNOWN INDICATION
  2. LYRICA [Suspect]
     Active Substance: PREGABALIN
     Dosage: UNK

REACTIONS (9)
  - Syncope [Unknown]
  - Cognitive disorder [Unknown]
  - Spinal pain [Unknown]
  - Pain [Unknown]
  - Neck pain [Unknown]
  - Therapy cessation [Unknown]
  - Nausea [Unknown]
  - Muscle spasms [Unknown]
  - Gastritis [Unknown]
